FAERS Safety Report 13247941 (Version 1)
Quarter: 2017Q1

REPORT INFORMATION
  Report Type: Report from Study
  Country: US (occurrence: US)
  Receive Date: 20170217
  Receipt Date: 20170217
  Transmission Date: 20170428
  Serious: Yes (Hospitalization)
  Sender: FDA-Public Use
  Company Number: PHHO2017US001427

PATIENT
  Age: 75 Year
  Sex: Male
  Weight: 110.66 kg

DRUGS (15)
  1. ENTRESTO [Suspect]
     Active Substance: SACUBITRIL\VALSARTAN
     Dosage: 1 DF, BID (24 /26 MG 1 TAB BID)
     Route: 048
  2. HYDRALAZINE SANDOZ [Suspect]
     Active Substance: HYDRALAZINE HYDROCHLORIDE
     Indication: HYPERTENSION
     Dosage: 25 MG, TID
     Route: 065
     Dates: start: 20170104
  3. VITAMIN B12 [Concomitant]
     Active Substance: CYANOCOBALAMIN
     Indication: SUPPLEMENTATION THERAPY
     Dosage: 1 DF, QD (1 TAB QD)
     Route: 048
     Dates: start: 20170116
  4. POTASSIUM CHLORIDE. [Concomitant]
     Active Substance: POTASSIUM CHLORIDE
     Indication: CARDIAC FAILURE
     Dosage: 20 MEQ, QD
     Route: 065
     Dates: start: 201606
  5. COENZYME Q10 [Concomitant]
     Active Substance: UBIDECARENONE
     Indication: HYPERLIPIDAEMIA
     Dosage: 100 MG, QD
     Route: 065
     Dates: start: 20161114
  6. VITAMIN D [Concomitant]
     Active Substance: CHOLECALCIFEROL
     Indication: SUPPLEMENTATION THERAPY
     Dosage: 1 DF, QD (1 TAB QD)
     Route: 048
     Dates: start: 20170116
  7. ASPIRIN. [Concomitant]
     Active Substance: ASPIRIN
     Indication: HYPERLIPIDAEMIA
     Dosage: 81 MG, QD
     Route: 065
     Dates: start: 201610
  8. LOSARTAN. [Concomitant]
     Active Substance: LOSARTAN
     Indication: HYPERTENSION
     Dosage: 50 MG, BID
     Route: 065
     Dates: start: 20170124
  9. SPIRONOLACTONE. [Concomitant]
     Active Substance: SPIRONOLACTONE
     Indication: CARDIOMYOPATHY
     Dosage: 25 MG, QD
     Route: 065
     Dates: start: 201610
  10. FUROSEMIDE. [Concomitant]
     Active Substance: FUROSEMIDE
     Indication: CARDIAC FAILURE
     Dosage: 40 MG, QD
     Route: 065
     Dates: start: 201608
  11. CRESTOR [Concomitant]
     Active Substance: ROSUVASTATIN CALCIUM
     Indication: HYPERLIPIDAEMIA
     Dosage: 5 MG, QD
     Route: 065
     Dates: start: 20161114
  12. SYMBICORT [Concomitant]
     Active Substance: BUDESONIDE\FORMOTEROL FUMARATE DIHYDRATE
     Indication: DYSPNOEA
     Dosage: 160 TO 4.5 MCG PRN
     Route: 065
     Dates: start: 201606
  13. ENTRESTO [Suspect]
     Active Substance: SACUBITRIL\VALSARTAN
     Indication: CARDIAC FAILURE
     Dosage: 1 DF, BID (24 /26 MG 1 TAB BID)
     Route: 048
     Dates: start: 20161219, end: 20170118
  14. DIGOXIN. [Concomitant]
     Active Substance: DIGOXIN
     Indication: HYPERTENSION
     Dosage: 0.125 MG, QD
     Route: 065
     Dates: start: 201611
  15. CARVEDILOL. [Concomitant]
     Active Substance: CARVEDILOL
     Indication: CARDIOMYOPATHY
     Dosage: 25 MG, BID
     Route: 065
     Dates: start: 20170201

REACTIONS (2)
  - Left ventricular failure [Recovered/Resolved]
  - Syncope [Not Recovered/Not Resolved]

NARRATIVE: CASE EVENT DATE: 20170118
